FAERS Safety Report 11428136 (Version 1)
Quarter: 2015Q3

REPORT INFORMATION
  Report Type: Spontaneous
  Country: US (occurrence: US)
  Receive Date: 20150828
  Receipt Date: 20150828
  Transmission Date: 20151125
  Serious: No
  Sender: FDA-Public Use
  Company Number: US-ROCHE-1257190

PATIENT
  Age: 56 Year
  Sex: Male

DRUGS (3)
  1. PEGASYS [Suspect]
     Active Substance: PEGINTERFERON ALFA-2A
     Indication: CHRONIC HEPATITIS C
     Route: 058
     Dates: start: 20130731
  2. TELAPREVIR [Suspect]
     Active Substance: TELAPREVIR
     Indication: CHRONIC HEPATITIS C
     Route: 065
     Dates: start: 20130731
  3. RIBAVIRIN. [Suspect]
     Active Substance: RIBAVIRIN
     Indication: CHRONIC HEPATITIS C
     Dosage: 1000 MG DAILY DIVIDED DOSES, 600/400
     Route: 065
     Dates: start: 20130731

REACTIONS (10)
  - Rash erythematous [Unknown]
  - Asthenia [Unknown]
  - Headache [Unknown]
  - Nasopharyngitis [Unknown]
  - Pain [Unknown]
  - Stress [Unknown]
  - Vomiting [Unknown]
  - Chills [Unknown]
  - Nausea [Unknown]
  - Abdominal pain [Unknown]

NARRATIVE: CASE EVENT DATE: 20130804
